FAERS Safety Report 8816421 (Version 1)
Quarter: 2012Q4

REPORT INFORMATION
  Report Type: Spontaneous
  Country: US (occurrence: None)
  Receive Date: 20120928
  Receipt Date: 20120928
  Transmission Date: 20130627
  Serious: Yes (Hospitalization)
  Sender: FDA-Public Use
  Company Number: None

PATIENT
  Age: 71 Year
  Sex: Male
  Weight: 73.65 kg

DRUGS (7)
  1. ONDANSETRON [Suspect]
     Indication: GASTROENTERITIS
     Route: 042
     Dates: start: 20120926, end: 20120926
  2. FENOFIBRATE [Concomitant]
  3. IBUPROFEN [Concomitant]
  4. MEGESTROL [Concomitant]
  5. KCL [Concomitant]
  6. MIDODRINE [Concomitant]
  7. SENNOSIDES [Concomitant]

REACTIONS (4)
  - Disorientation [None]
  - Restlessness [None]
  - Agitation [None]
  - Hallucination [None]
